FAERS Safety Report 5832940-0 (Version None)
Quarter: 2008Q3

REPORT INFORMATION
  Report Type: 
  Country: None (occurrence: None)
  Receive Date: 20080730
  Receipt Date: 20080722
  Transmission Date: 20090109
  Serious: Yes (Death)
  Sender: FDA-Public Use
  Company Number: 2008JP003411

PATIENT
  Age: 36 Year
  Sex: Female

DRUGS (5)
  1. PROGRAF [Suspect]
     Indication: STEM CELL TRANSPLANT
  2. CYCLOPHOSPHAMIDE [Concomitant]
  3. ANTITHYMOCYTE IMMUNOGLOBULIN (ANTITHYMOCYTE IMMUNOGLOBULIN) [Concomitant]
  4. METHOTREXATE [Concomitant]
  5. GANCICLOVIR [Concomitant]

REACTIONS (3)
  - CYTOMEGALOVIRUS INFECTION [None]
  - LEUKAEMIA RECURRENT [None]
  - VIRAL DNA TEST POSITIVE [None]
